FAERS Safety Report 5518965-3 (Version None)
Quarter: 2007Q4

REPORT INFORMATION
  Report Type: 
  Country: None (occurrence: None)
  Receive Date: 20071116
  Receipt Date: 20071107
  Transmission Date: 20080405
  Serious: Yes (Other)
  Sender: FDA-Public Use
  Company Number: PHEH2007US05232

PATIENT
  Age: 67 Year
  Sex: Female
  Weight: 50.793 kg

DRUGS (12)
  1. ESTRADERM [Suspect]
     Indication: MENOPAUSE
     Dosage: 0.05 MG, TWICE WEEKLY
     Route: 062
     Dates: start: 19920101, end: 20001005
  2. XANAX [Concomitant]
     Dosage: 0.25 MG, UNK
     Route: 048
  3. ALPRAZOLAM [Concomitant]
     Dosage: 0.25 MG, UNK
     Route: 048
  4. INDOCIN [Concomitant]
     Dosage: 25 MG, TID
     Route: 048
  5. DEPO-PROVERA [Suspect]
  6. PROVERA [Suspect]
     Indication: MENOPAUSE
     Dosage: 5 MG, QD
     Route: 048
     Dates: start: 19960204, end: 19980526
  7. CYCRIN [Suspect]
     Indication: MENOPAUSE
     Dosage: 5 MG, QD
     Route: 048
     Dates: start: 19990425
  8. ESTROGEN NOS [Suspect]
     Indication: MENOPAUSE
  9. MEDROXYPROGESTERONE [Suspect]
     Indication: MENOPAUSE
     Dosage: 5 MG, UNK
     Route: 048
     Dates: start: 19991005, end: 20010201
  10. CLIMARA [Suspect]
     Indication: MENOPAUSE
     Dosage: 0.05 MG, UNK
     Route: 062
     Dates: start: 20000203, end: 20010203
  11. PREMARIN [Suspect]
     Indication: MENOPAUSE
     Dosage: 1.25 MG, UNK
     Route: 048
     Dates: start: 19910101
  12. ESTRACE [Suspect]
     Indication: MENOPAUSE
     Dosage: 2 MG, UNK
     Route: 048
     Dates: start: 19910401

REACTIONS (21)
  - ADENOIDECTOMY [None]
  - ARTHRITIS [None]
  - BREAST CANCER [None]
  - BREAST DISCHARGE [None]
  - BREAST PROSTHESIS REMOVAL [None]
  - COLON ADENOMA [None]
  - EMOTIONAL DISTRESS [None]
  - FIBROCYSTIC BREAST DISEASE [None]
  - HOT FLUSH [None]
  - MALIGNANT BREAST LUMP REMOVAL [None]
  - MAMMOGRAM ABNORMAL [None]
  - MASS [None]
  - MASTECTOMY [None]
  - MENOPAUSAL SYMPTOMS [None]
  - OSTEOPENIA [None]
  - OSTEOPOROSIS [None]
  - OVARIAN CYST [None]
  - PAIN IN EXTREMITY [None]
  - POLYPECTOMY [None]
  - RADIOTHERAPY [None]
  - TONSILLECTOMY [None]
